FAERS Safety Report 25149321 (Version 1)
Quarter: 2025Q2

REPORT INFORMATION
  Report Type: Spontaneous
  Country: US (occurrence: US)
  Receive Date: 20250402
  Receipt Date: 20250402
  Transmission Date: 20250716
  Serious: Yes (Other)
  Sender: STRIDES
  Company Number: US-STRIDES ARCOLAB LIMITED-2025SP004136

PATIENT
  Age: 74 Year
  Sex: Male

DRUGS (3)
  1. DOFETILIDE [Interacting]
     Active Substance: DOFETILIDE
     Indication: Atrial flutter
     Route: 065
  2. DOFETILIDE [Interacting]
     Active Substance: DOFETILIDE
     Route: 065
  3. BOSUTINIB [Interacting]
     Active Substance: BOSUTINIB
     Indication: Chronic myeloid leukaemia
     Route: 065

REACTIONS (2)
  - Electrocardiogram QT prolonged [Recovering/Resolving]
  - Drug interaction [Recovering/Resolving]
